FAERS Safety Report 7749291-X (Version None)
Quarter: 2011Q3

REPORT INFORMATION
  Report Type: 
  Country: None (occurrence: None)
  Receive Date: 20110825
  Receipt Date: 20110513
  Transmission Date: 20111222
  Serious: No
  Sender: FDA-Public Use
  Company Number: 328174

PATIENT
  Age: 56 Year
  Sex: Male

DRUGS (2)
  1. VICTOZA [Suspect]
     Indication: TYPE 2 DIABETES MELLITUS
     Dosage: 0.6 MG, QD, SUBCUTANEOUS
     Route: 058
     Dates: start: 20110506
  2. OMEPRAZOLE [Concomitant]

REACTIONS (3)
  - HEADACHE [None]
  - ABDOMINAL DISCOMFORT [None]
  - DYSPEPSIA [None]
